FAERS Safety Report 7756686-7 (Version None)
Quarter: 2011Q3

REPORT INFORMATION
  Report Type: 
  Country: None (occurrence: None)
  Receive Date: 20110916
  Receipt Date: 20110907
  Transmission Date: 20111222
  Serious: Yes (Other)
  Sender: FDA-Public Use
  Company Number: US-JNJFOC-20110904264

PATIENT
  Sex: Male

DRUGS (6)
  1. PREDNISONE [Concomitant]
     Indication: ILL-DEFINED DISORDER
     Route: 065
  2. AMLODIPINE [Concomitant]
     Indication: ILL-DEFINED DISORDER
     Route: 065
  3. TOPROL-XL [Concomitant]
     Indication: ILL-DEFINED DISORDER
     Route: 065
  4. TRAZODONE HCL [Concomitant]
     Indication: ILL-DEFINED DISORDER
     Route: 065
  5. DIOVAN [Concomitant]
     Indication: ILL-DEFINED DISORDER
     Route: 065
  6. ZYTIGA [Suspect]
     Indication: ILL-DEFINED DISORDER
     Route: 065

REACTIONS (3)
  - FALL [None]
  - HAEMORRHAGE [None]
  - PULMONARY EMBOLISM [None]
